FAERS Safety Report 4895464-3 (Version None)
Quarter: 2005Q4

REPORT INFORMATION
  Report Type: 
  Country: None (occurrence: None)
  Receive Date: 20051220
  Receipt Date: 20050607
  Transmission Date: 20060501
  Serious: Yes (Other)
  Sender: FDA-Public Use
  Company Number: US135593

PATIENT
  Age: 48 Year
  Sex: Male

DRUGS (6)
  1. ENBREL [Suspect]
     Indication: PSORIASIS
     Dosage: 50 MG, 2 IN 1 WEEKS;
     Dates: start: 20040401, end: 20041002
  2. ENBREL [Suspect]
     Indication: PSORIASIS
     Dosage: 50 MG, 2 IN 1 WEEKS;
     Dates: start: 20050201
  3. TRIAMTERENE AND HYDROCHLOROTHIAZIDE [Concomitant]
  4. ACETYLSALICYLIC ACID SRT [Concomitant]
  5. GLUCOSAMINE [Concomitant]
  6. MULTIVITAMIN [Concomitant]

REACTIONS (1)
  - THROMBOCYTOPENIA [None]
